FAERS Safety Report 13736274 (Version 1)
Quarter: 2017Q3

REPORT INFORMATION
  Report Type: Report from Study
  Country: None (occurrence: US)
  Receive Date: 20170710
  Receipt Date: 20170710
  Transmission Date: 20171127
  Serious: Yes (Hospitalization, Other)
  Sender: FDA-Public Use
  Company Number: US-ABBVIE-17K-163-2031033-00

PATIENT
  Age: 29 Year
  Sex: Female

DRUGS (1)
  1. HUMIRA [Suspect]
     Active Substance: ADALIMUMAB
     Indication: CROHN^S DISEASE
     Route: 058
     Dates: start: 2013

REACTIONS (12)
  - Malaise [Unknown]
  - Electrolyte depletion [Recovering/Resolving]
  - Hypomagnesaemia [Recovering/Resolving]
  - Abdominal pain [Unknown]
  - Inappropriate schedule of drug administration [Unknown]
  - Hepatic steatosis [Unknown]
  - Hypokalaemia [Recovering/Resolving]
  - Decreased appetite [Unknown]
  - Electrocardiogram QT prolonged [Unknown]
  - Electrolyte imbalance [Unknown]
  - Self-induced vomiting [Unknown]
  - Thirst [Unknown]

NARRATIVE: CASE EVENT DATE: 201611
